FAERS Safety Report 7602271-7 (Version None)
Quarter: 2011Q3

REPORT INFORMATION
  Report Type: 
  Country: None (occurrence: None)
  Receive Date: 20110711
  Receipt Date: 20110705
  Transmission Date: 20111222
  Serious: Yes (Hospitalization, Other)
  Sender: FDA-Public Use
  Company Number: CA-ABBOTT-11P-028-0836801-00

PATIENT
  Sex: Female
  Weight: 72.64 kg

DRUGS (5)
  1. VITAMIN B [Concomitant]
     Indication: VITAMIN SUPPLEMENTATION
     Route: 048
     Dates: start: 20100101
  2. PREDNISONE [Concomitant]
     Indication: HAEMATOCHEZIA
  3. CALCIUM CARBONATE [Concomitant]
     Indication: MINERAL SUPPLEMENTATION
     Route: 048
     Dates: start: 20010101
  4. HUMIRA [Suspect]
     Indication: COLITIS ULCERATIVE
     Route: 058
     Dates: start: 20101105, end: 20110608
  5. HUMIRA [Suspect]
     Dosage: 160 MG
     Dates: start: 20110608, end: 20110608

REACTIONS (3)
  - COLECTOMY [None]
  - DIARRHOEA HAEMORRHAGIC [None]
  - HAEMATOCHEZIA [None]
